FAERS Safety Report 7040577-3 (Version None)
Quarter: 2010Q4

REPORT INFORMATION
  Report Type: 
  Country: None (occurrence: None)
  Receive Date: 20101012
  Receipt Date: 20101005
  Transmission Date: 20110411
  Serious: Yes (Hospitalization)
  Sender: FDA-Public Use
  Company Number: US-GILEAD-2010-0031754

PATIENT
  Sex: Female

DRUGS (3)
  1. LETAIRIS [Suspect]
     Indication: PULMONARY ARTERIAL HYPERTENSION
     Route: 048
     Dates: start: 20100805, end: 20100901
  2. LETAIRIS [Suspect]
     Route: 048
     Dates: start: 20100904
  3. REMODULIN [Concomitant]

REACTIONS (3)
  - DYSPNOEA [None]
  - HEART RATE INCREASED [None]
  - OEDEMA [None]
